FAERS Safety Report 5341545-X (Version None)
Quarter: 2007Q2

REPORT INFORMATION
  Report Type: 
  Country: None (occurrence: None)
  Receive Date: 20070601
  Receipt Date: 20070524
  Transmission Date: 20071010
  Serious: Yes (Other)
  Sender: FDA-Public Use
  Company Number: HQWYE327124MAY07

PATIENT
  Sex: Female

DRUGS (3)
  1. INDERAL [Suspect]
     Indication: HYPERTENSION
     Dosage: 2 (40 MG) TABLETS DAILY
     Route: 048
     Dates: start: 19770101, end: 20070521
  2. LIPITOR [Concomitant]
     Indication: BLOOD CHOLESTEROL INCREASED
     Dosage: UNKNOWN
     Route: 048
     Dates: start: 20050101
  3. GLUCOPHAGE [Concomitant]
     Indication: DIABETES MELLITUS
     Dosage: UNKNOWN
     Route: 048
     Dates: start: 20050101

REACTIONS (2)
  - BLOOD PRESSURE INCREASED [None]
  - DRUG INEFFECTIVE [None]
